FAERS Safety Report 20196112 (Version 1)
Quarter: 2021Q4

REPORT INFORMATION
  Report Type: Spontaneous
  Country: JP (occurrence: JP)
  Receive Date: 20211216
  Receipt Date: 20211216
  Transmission Date: 20220303
  Serious: Yes (Hospitalization)
  Sender: FDA-Public Use
  Company Number: None

PATIENT
  Age: 62 Year
  Sex: Female

DRUGS (2)
  1. NORDITROPIN [Suspect]
     Active Substance: SOMATROPIN
     Indication: Growth hormone deficiency
     Dosage: 0.5 MG, QD
     Route: 058
     Dates: start: 2018, end: 201907
  2. LEVOTHYROXINE [Concomitant]
     Active Substance: LEVOTHYROXINE
     Indication: Secondary hypothyroidism
     Dosage: 50 ???G, QD ( UP TO 50 MCG/DAY )
     Route: 048
     Dates: start: 2018, end: 201907

REACTIONS (1)
  - Endocrine ophthalmopathy [Recovered/Resolved]

NARRATIVE: CASE EVENT DATE: 20180101
